FAERS Safety Report 8710573 (Version 2)
Quarter: 2012Q4

REPORT INFORMATION
  Report Type: 
  Country: US (occurrence: US)
  Receive Date: 20120807
  Receipt Date: 20120926
  Transmission Date: 20130627
  Serious: Yes (Disabling)
  Sender: FDA-Public Use
  Company Number: US-PFIZER INC-2012189604

PATIENT
  Age: 58 Year
  Sex: Male
  Weight: 95.24 kg

DRUGS (10)
  1. NITROSTAT [Suspect]
     Indication: CHEST PAIN
     Dosage: 0.4 mg, as needed
     Route: 048
  2. NITROSTAT [Suspect]
     Indication: CARDIAC DISORDER
     Dosage: UNK, as needed
     Dates: start: 2012
  3. XALATAN [Suspect]
     Indication: EYE OPERATION
     Dosage: 0.005 %, 1 drop QD in PM
  4. XALATAN [Suspect]
     Dosage: 1 Gtt, 2x/day
     Dates: end: 201208
  5. LEVEMIR FLEXPEN [Concomitant]
     Dosage: UNK
  6. PRAVASTATIN [Concomitant]
     Dosage: UNK
  7. LEVOTHROID [Concomitant]
     Dosage: UNK
  8. ASPIRIN [Concomitant]
     Dosage: UNK
  9. NOVOLOG [Concomitant]
     Dosage: UNK
  10. CLOPIDOGREL [Concomitant]
     Indication: ANTICOAGULANT THERAPY
     Dosage: 25 mg, daily

REACTIONS (1)
  - Blindness [Unknown]
